FAERS Safety Report 17380748 (Version 1)
Quarter: 2020Q1

REPORT INFORMATION
  Report Type: Spontaneous
  Country: US (occurrence: US)
  Receive Date: 20200206
  Receipt Date: 20200206
  Transmission Date: 20200409
  Serious: Yes (Other)
  Sender: FDA-Public Use
  Company Number: None

PATIENT
  Age: 23 Year
  Sex: Male
  Weight: 81 kg

DRUGS (2)
  1. TRUVADA (PREP) [Concomitant]
  2. LEVAQUIN [Suspect]
     Active Substance: LEVOFLOXACIN
     Indication: PROSTATITIS
     Route: 048
     Dates: start: 20191213, end: 20191220

REACTIONS (2)
  - Tendon pain [None]
  - Gait inability [None]

NARRATIVE: CASE EVENT DATE: 20191213
